FAERS Safety Report 6863972-1 (Version None)
Quarter: 2010Q3

REPORT INFORMATION
  Report Type: 
  Country: None (occurrence: None)
  Receive Date: 20100721
  Receipt Date: 20080502
  Transmission Date: 20110219
  Serious: No
  Sender: FDA-Public Use
  Company Number: US-PFIZER INC-2008022475

PATIENT
  Sex: Male
  Weight: 84.1 kg

DRUGS (3)
  1. CHANTIX [Suspect]
     Indication: SMOKING CESSATION THERAPY
     Route: 048
     Dates: start: 20080301
  2. PLAVIX [Concomitant]
  3. METFORMIN [Concomitant]

REACTIONS (4)
  - ABNORMAL DREAMS [None]
  - CHEST DISCOMFORT [None]
  - NERVOUSNESS [None]
  - SLEEP DISORDER [None]
